FAERS Safety Report 9361584 (Version 3)
Quarter: 2013Q3

REPORT INFORMATION
  Report Type: Spontaneous
  Country: GB (occurrence: GB)
  Receive Date: 20130621
  Receipt Date: 20130808
  Transmission Date: 20140515
  Serious: Yes (Life-Threatening, Hospitalization, Other)
  Sender: FDA-Public Use
  Company Number: PHFR2013GB003542

PATIENT
  Age: 66 Year
  Sex: Female

DRUGS (2)
  1. CLOZARIL [Suspect]
     Indication: SCHIZOPHRENIA
     Dosage: UNK
     Route: 048
     Dates: start: 20080410
  2. CLOZARIL [Suspect]
     Dosage: UNK
     Route: 048
     Dates: start: 200807, end: 20130618

REACTIONS (5)
  - Malaise [Recovered/Resolved]
  - Lower respiratory tract infection [Recovered/Resolved]
  - Chest discomfort [Unknown]
  - Antipsychotic drug level increased [Recovered/Resolved]
  - Platelet count decreased [Unknown]
